FAERS Safety Report 6994573-2 (Version None)
Quarter: 2010Q3

REPORT INFORMATION
  Report Type: 
  Country: None (occurrence: None)
  Receive Date: 20100916
  Receipt Date: 20100916
  Transmission Date: 20110219
  Serious: Yes (Life-Threatening)
  Sender: FDA-Public Use
  Company Number: None

PATIENT
  Age: 48 Year
  Sex: Female
  Weight: 62 kg

DRUGS (11)
  1. IBUPROFEN [Suspect]
     Indication: PAIN
     Dosage: 200MG 4 TIMES A DAY PO, SEVERAL YEARS
     Route: 048
  2. KLONOPIN [Concomitant]
  3. SEROQUEL [Concomitant]
  4. PAXIL [Concomitant]
  5. TEGRETOL [Concomitant]
  6. DIOVAN [Concomitant]
  7. SYNTHROID [Concomitant]
  8. BUSPAR [Concomitant]
  9. PREVACID [Concomitant]
  10. SONATA [Concomitant]
  11. MOTRIN [Concomitant]

REACTIONS (3)
  - ANAEMIA [None]
  - GASTRITIS [None]
  - GASTROINTESTINAL HAEMORRHAGE [None]
